FAERS Safety Report 14294757 (Version 1)
Quarter: 2017Q4

REPORT INFORMATION
  Report Type: Report from Study
  Country: US (occurrence: US)
  Receive Date: 20171218
  Receipt Date: 20171218
  Transmission Date: 20180321
  Serious: Yes (Other)
  Sender: FDA-Public Use
  Company Number: US-AMGEN-USASL2017175099

PATIENT
  Age: 65 Year
  Sex: Male
  Weight: 81 kg

DRUGS (2)
  1. REPATHA [Suspect]
     Active Substance: EVOLOCUMAB
     Indication: HYPERLIPIDAEMIA
  2. REPATHA [Suspect]
     Active Substance: EVOLOCUMAB
     Indication: BLOOD CHOLESTEROL INCREASED
     Dosage: 140 MG, Q2WK
     Route: 058
     Dates: start: 20170817

REACTIONS (3)
  - Fatigue [Recovering/Resolving]
  - Feeling abnormal [Unknown]
  - Depression [Recovering/Resolving]

NARRATIVE: CASE EVENT DATE: 2017
